FAERS Safety Report 16463955 (Version 2)
Quarter: 2020Q2

REPORT INFORMATION
  Report Type: Spontaneous
  Country: US (occurrence: US)
  Receive Date: 20190621
  Receipt Date: 20200616
  Transmission Date: 20200713
  Serious: No
  Sender: FDA-Public Use
  Company Number: US-ASTELLAS-2018US032909

PATIENT
  Sex: Female

DRUGS (2)
  1. VESICARE [Suspect]
     Active Substance: SOLIFENACIN SUCCINATE
     Indication: MICTURITION URGENCY
     Dosage: UNK, UNKNOWN FREQ.
     Route: 065
     Dates: start: 2016
  2. VESICARE [Suspect]
     Active Substance: SOLIFENACIN SUCCINATE
     Indication: PAIN
     Route: 065
     Dates: start: 201807

REACTIONS (3)
  - Asthenopia [Unknown]
  - Feeling abnormal [Unknown]
  - Somnolence [Unknown]
